FAERS Safety Report 7934320 (Version 2)
Quarter: 2014Q1

REPORT INFORMATION
  Report Type: Spontaneous
  Country: US (occurrence: US)
  Receive Date: 20110506
  Receipt Date: 20140124
  Transmission Date: 20141002
  Serious: Yes (Hospitalization)
  Sender: FDA-Public Use
  Company Number: US-GILEAD-2011-0039145

PATIENT
  Age: 75 Year
  Sex: Female
  Weight: 76.2 kg

DRUGS (9)
  1. RANEXA [Suspect]
     Indication: ANGINA PECTORIS
     Route: 048
     Dates: start: 20110328, end: 20110424
  2. ZOCOR [Suspect]
     Indication: HYPERLIPIDAEMIA
     Dates: start: 2000, end: 20110424
  3. NORVASC [Concomitant]
     Indication: HYPERTENSION
     Dates: start: 2000
  4. METOPROLOL [Concomitant]
     Indication: HYPERTENSION
     Dates: start: 2000
  5. ZETIA [Concomitant]
     Indication: HYPERLIPIDAEMIA
     Dates: start: 2000, end: 20110427
  6. TRIAMTERENE / HCTZ [Concomitant]
     Indication: HYPERTENSION
     Dates: start: 2000, end: 20110427
  7. ZANTAC [Concomitant]
     Indication: GASTROOESOPHAGEAL REFLUX DISEASE
     Dates: end: 20110429
  8. ASA [Concomitant]
     Dates: start: 2000
  9. ACCUPRIL [Concomitant]
     Indication: HYPERTENSION
     Dates: start: 2000, end: 20110427

REACTIONS (1)
  - Rhabdomyolysis [Recovered/Resolved with Sequelae]
